FAERS Safety Report 17764845 (Version 13)
Quarter: 2020Q4

REPORT INFORMATION
  Report Type: Report from Study
  Country: DE (occurrence: DE)
  Receive Date: 20200511
  Receipt Date: 20201204
  Transmission Date: 20210113
  Serious: Yes (Hospitalization, Other)
  Sender: FDA-Public Use
  Company Number: DE-BRISTOL-MYERS SQUIBB COMPANY-BMS-2018-012366

PATIENT
  Age: 67 Year
  Sex: Female
  Weight: 72.5 kg

DRUGS (45)
  1. NIVOLUMAB [Suspect]
     Active Substance: NIVOLUMAB
     Dosage: 1 DOSAGE FORM, Q4WK
     Route: 065
     Dates: start: 20180802, end: 20190305
  2. NIVOLUMAB [Suspect]
     Active Substance: NIVOLUMAB
     Dosage: UNK UNK, Q4WK
     Route: 065
     Dates: start: 20190305, end: 20190402
  3. NIVOLUMAB [Suspect]
     Active Substance: NIVOLUMAB
     Dosage: 480 ABSENT, Q4WK
     Route: 065
     Dates: start: 20190702, end: 20190702
  4. NIVOLUMAB [Suspect]
     Active Substance: NIVOLUMAB
     Dosage: 480 ABSENT, Q4WK
     Route: 065
     Dates: start: 20190507, end: 20190806
  5. NIVOLUMAB [Suspect]
     Active Substance: NIVOLUMAB
     Dosage: 480 ABSENT, Q4WK
     Route: 065
     Dates: start: 20191105, end: 20191105
  6. NIVOLUMAB [Suspect]
     Active Substance: NIVOLUMAB
     Dosage: 480 ABSENT, Q4WK
     Route: 065
     Dates: start: 20200707
  7. ETORICOXIB. [Concomitant]
     Active Substance: ETORICOXIB
     Indication: PRODUCT USED FOR UNKNOWN INDICATION
     Dosage: 90 MILLIGRAM, QD
     Route: 048
     Dates: start: 20190806
  8. VITAMIN D 2000 [Concomitant]
     Active Substance: VITAMIN D NOS
     Indication: PROPHYLAXIS
     Dosage: 1000 MICROGRAM
     Route: 048
     Dates: start: 20190806
  9. HYDROCORTISON [HYDROCORTISONE] [Concomitant]
     Dosage: 30 MILLIGRAM, QD
     Route: 048
     Dates: start: 20190806, end: 20191001
  10. HYDROCORTISON [HYDROCORTISONE] [Concomitant]
     Dosage: 20 MILLIGRAM, QD
     Route: 048
     Dates: start: 20200505
  11. NIVOLUMAB [Suspect]
     Active Substance: NIVOLUMAB
     Dosage: 480 ABSENT, Q4WK
     Route: 065
     Dates: start: 20191001, end: 20191001
  12. NIVOLUMAB [Suspect]
     Active Substance: NIVOLUMAB
     Dosage: 480 ABSENT, Q4WK
     Route: 065
     Dates: start: 20201201, end: 20201201
  13. HYDROCORTISON [HYDROCORTISONE] [Concomitant]
     Dosage: 50 MILLIGRAM, QD
     Route: 048
     Dates: start: 20200314, end: 20200406
  14. HYDROCORTISON [HYDROCORTISONE] [Concomitant]
     Dosage: 30 MILLIGRAM, DAILY
     Route: 048
     Dates: start: 20200609, end: 20200706
  15. HYDROCORTISON [HYDROCORTISONE] [Concomitant]
     Dosage: 20 MILLIGRAM DAILY
     Route: 048
     Dates: start: 20200706, end: 20200707
  16. NIVOLUMAB [Suspect]
     Active Substance: NIVOLUMAB
     Dosage: 480 ABSENT, Q4WK
     Route: 065
     Dates: start: 20200107, end: 20200107
  17. IPILIMUMAB [Suspect]
     Active Substance: IPILIMUMAB
     Indication: MALIGNANT MELANOMA
     Dosage: 1 DOSAGE FORM, Q3WK
     Route: 065
     Dates: start: 20171102, end: 20171214
  18. IPILIMUMAB [Suspect]
     Active Substance: IPILIMUMAB
     Dosage: 1 DOSAGE FORM, Q3WK
     Route: 065
     Dates: start: 20180208, end: 20180208
  19. L-THYROXIN [LEVOTHYROXINE] [Concomitant]
     Active Substance: LEVOTHYROXINE SODIUM
     Dosage: 75 MICROGRAM, QD
     Route: 048
     Dates: start: 201907, end: 20191209
  20. MONOVO [Concomitant]
     Dosage: 1 MILLIGRAM, PRN, RECENT DOSE: 03-SEP-2019
     Route: 062
     Dates: start: 20200609
  21. NIVOLUMAB [Suspect]
     Active Substance: NIVOLUMAB
     Dosage: UNK UNK, Q2WK
     Route: 065
     Dates: start: 20180322, end: 20180322
  22. NIVOLUMAB [Suspect]
     Active Substance: NIVOLUMAB
     Dosage: 480 ABSENT, Q4WK
     Route: 065
     Dates: start: 20200204, end: 20200204
  23. HYDROCORTISON [HYDROCORTISONE] [Concomitant]
     Dosage: 50 MILLIGRAM, QD
     Route: 048
     Dates: start: 201905, end: 20190806
  24. MONOVO [Concomitant]
     Indication: PRODUCT USED FOR UNKNOWN INDICATION
     Dosage: 7 MILLIGRAM, PER NEEDED
     Route: 062
     Dates: start: 201906
  25. NIVOLUMAB [Suspect]
     Active Substance: NIVOLUMAB
     Indication: MALIGNANT MELANOMA
     Dosage: 1 DOSAGE FORM, Q3WK
     Route: 065
     Dates: start: 20171102, end: 20180208
  26. NIVOLUMAB [Suspect]
     Active Substance: NIVOLUMAB
     Dosage: 480 ABSENT, Q4WK
     Route: 065
     Dates: start: 20190604, end: 20190604
  27. TORSEMIDE. [Concomitant]
     Active Substance: TORSEMIDE
     Indication: PRODUCT USED FOR UNKNOWN INDICATION
     Dosage: 5 MILLIGRAM, QD
     Route: 048
     Dates: start: 20171207, end: 20171213
  28. L-THYROXIN [LEVOTHYROXINE] [Concomitant]
     Active Substance: LEVOTHYROXINE SODIUM
     Indication: HYPOPHYSITIS
     Dosage: 50 MICROGRAM, QD
     Route: 048
     Dates: start: 201905
  29. HYDROCORTISON [HYDROCORTISONE] [Concomitant]
     Dosage: 100 MILLIGRAM, QD
     Route: 042
     Dates: start: 20200313, end: 20200313
  30. NIVOLUMAB [Suspect]
     Active Substance: NIVOLUMAB
     Dosage: 480 ABSENT, Q4WK
     Route: 065
     Dates: start: 20200407, end: 20200407
  31. NIVOLUMAB [Suspect]
     Active Substance: NIVOLUMAB
     Dosage: 480 ABSENT, Q4WK
     Route: 065
     Dates: start: 20200609, end: 20200609
  32. HYDROCORTISON [HYDROCORTISONE] [Concomitant]
     Dosage: 15 MILLIGRAM, QD
     Route: 048
     Dates: start: 20191001, end: 20191025
  33. NIVOLUMAB [Suspect]
     Active Substance: NIVOLUMAB
     Dosage: 480 ABSENT, Q4WK
     Route: 065
     Dates: start: 20190903, end: 20190903
  34. NIVOLUMAB [Suspect]
     Active Substance: NIVOLUMAB
     Dosage: 480 ABSENT, Q4WK
     Route: 065
     Dates: start: 20200303, end: 20200303
  35. NIVOLUMAB [Suspect]
     Active Substance: NIVOLUMAB
     Dosage: 480 ABSENT, Q4WK
     Route: 065
     Dates: start: 20200505, end: 20200505
  36. NIVOLUMAB [Suspect]
     Active Substance: NIVOLUMAB
     Dosage: 480 MILLIGRAM, Q4WK
     Route: 065
     Dates: start: 20200804, end: 20200804
  37. NIVOLUMAB [Suspect]
     Active Substance: NIVOLUMAB
     Dosage: 480 ABSENT, Q4WK
     Route: 042
     Dates: start: 20201006, end: 20201006
  38. HYDROCORTISON [HYDROCORTISONE] [Concomitant]
     Dosage: 35 MICROGRAM, QD
     Route: 048
     Dates: start: 20200407, end: 20200504
  39. NIVOLUMAB [Suspect]
     Active Substance: NIVOLUMAB
     Dosage: 480 ABSENT, Q4WK
     Route: 065
     Dates: start: 20191210, end: 20191210
  40. NIVOLUMAB [Suspect]
     Active Substance: NIVOLUMAB
     Dosage: 480 ABSENT, Q4WK
     Route: 065
     Dates: start: 20200901, end: 20200901
  41. NIVOLUMAB [Suspect]
     Active Substance: NIVOLUMAB
     Dosage: 480 UNK, Q4WK
     Route: 065
     Dates: start: 20201103, end: 20201103
  42. L-THYROXIN [LEVOTHYROXINE] [Concomitant]
     Active Substance: LEVOTHYROXINE SODIUM
     Dosage: 50 MICROGRAM, QD
     Route: 048
     Dates: start: 20191210
  43. HYDROCORTISON [HYDROCORTISONE] [Concomitant]
     Indication: PRODUCT USED FOR UNKNOWN INDICATION
     Dosage: 80 MILLIGRAM, QD
     Route: 048
     Dates: start: 20190518
  44. HYDROCORTISON [HYDROCORTISONE] [Concomitant]
     Dosage: 10 MILLIGRAM, QD
     Route: 048
     Dates: start: 20191026, end: 20200312
  45. KALINOR [POTASSIUM CHLORIDE] [Concomitant]
     Active Substance: POTASSIUM CHLORIDE
     Indication: HYPOKALAEMIA
     Dosage: UNK, DAILY
     Route: 048
     Dates: start: 20180104, end: 20180110

REACTIONS (9)
  - Hypophysitis [Recovered/Resolved]
  - Loss of personal independence in daily activities [Unknown]
  - Lymphocytic hypophysitis [Recovered/Resolved with Sequelae]
  - Blood phosphorus increased [Unknown]
  - Blood phosphorus decreased [Unknown]
  - Eye swelling [Recovered/Resolved]
  - Infection [Unknown]
  - Gamma-glutamyltransferase increased [Unknown]
  - Hypopituitarism [Unknown]

NARRATIVE: CASE EVENT DATE: 20180104
